FAERS Safety Report 6959950-4 (Version None)
Quarter: 2010Q3

REPORT INFORMATION
  Report Type: 
  Country: None (occurrence: None)
  Receive Date: 20100901
  Receipt Date: 20100819
  Transmission Date: 20110219
  Serious: Yes (Other)
  Sender: FDA-Public Use
  Company Number: PHHY2010DE29482

PATIENT
  Sex: Female

DRUGS (20)
  1. ZOLEDRONATE T29581+ [Suspect]
     Indication: METASTASES TO BONE
     Dosage: 4 MG EVERY 4 WEEKS
     Route: 042
     Dates: start: 20091113, end: 20100401
  2. TAXOL [Concomitant]
     Indication: BREAST CANCER
     Dosage: 160 MG, UNK
     Dates: start: 20091120, end: 20091120
  3. TAXOL [Concomitant]
     Dosage: 160 MG, UNK
     Dates: start: 20091204, end: 20091204
  4. TAXOL [Concomitant]
     Dosage: 160 MG, UNK
     Dates: start: 20091218, end: 20091218
  5. TAXOL [Concomitant]
     Dosage: 160 MG, UNK
     Dates: start: 20100125, end: 20100125
  6. TAXOL [Concomitant]
     Dosage: 160 MG, UNK
     Dates: start: 20100201, end: 20100201
  7. TAXOL [Concomitant]
     Dosage: 160 MG, UNK
     Dates: start: 20100218, end: 20100218
  8. TAXOL [Concomitant]
     Dosage: 160 MG, UNK
     Dates: start: 20091228, end: 20091228
  9. TAXOL [Concomitant]
     Dosage: 160 MG, UNK
     Dates: start: 20100125, end: 20100125
  10. TAXOL [Concomitant]
     Dosage: 160 MG, UNK
     Dates: start: 20100201, end: 20100201
  11. TAXOL [Concomitant]
     Dosage: 160 MG, UNK
     Dates: start: 20100218, end: 20100218
  12. TAXOL [Concomitant]
     Dosage: UNK
     Dates: start: 20100429
  13. AVASTIN [Concomitant]
     Dosage: 750 MG, UNK
     Dates: start: 20091120, end: 20091120
  14. AVASTIN [Concomitant]
     Dosage: 750 MG, UNK
     Dates: start: 20091204, end: 20091204
  15. AVASTIN [Concomitant]
     Dosage: 750 MG, UNK
     Dates: start: 20091218, end: 20091218
  16. AVASTIN [Concomitant]
     Dosage: 750 MG, UNK
     Dates: start: 20100201, end: 20100201
  17. AVASTIN [Concomitant]
     Dosage: 750 MG, UNK
     Dates: start: 20100218, end: 20100218
  18. RANITIC [Concomitant]
     Dosage: 300 MG, UNK
     Dates: start: 20091127
  19. PREDNISOLONE [Concomitant]
     Dosage: 8 MG, QW
     Dates: start: 20091127
  20. DEXAMETHASONE [Concomitant]
     Indication: PROPHYLAXIS
     Dosage: 8 MG BEFORE EACH CHEMOTHERAPY CYCLE
     Dates: start: 20091120, end: 20100429

REACTIONS (1)
  - OSTEONECROSIS OF JAW [None]
